FAERS Safety Report 7428520-6 (Version None)
Quarter: 2011Q2

REPORT INFORMATION
  Report Type: 
  Country: None (occurrence: None)
  Receive Date: 20110415
  Receipt Date: 20110415
  Transmission Date: 20111010
  Serious: Yes (Hospitalization)
  Sender: FDA-Public Use
  Company Number: None

PATIENT
  Sex: Female
  Weight: 13.4 kg

DRUGS (3)
  1. ETOPOSIDE [Suspect]
     Dosage: 600 MG
  2. CYCLOPHOSPHAMIDE [Suspect]
     Dosage: 2700 MG
  3. VINCRISTINE SULFATE [Suspect]
     Dosage: 3.6 MG

REACTIONS (5)
  - VIRAL UPPER RESPIRATORY TRACT INFECTION [None]
  - PNEUMONIA [None]
  - PULMONARY HAEMORRHAGE [None]
  - ACUTE RESPIRATORY DISTRESS SYNDROME [None]
  - ENDOTRACHEAL INTUBATION COMPLICATION [None]
